FAERS Safety Report 25708284 (Version 1)
Quarter: 2025Q3

REPORT INFORMATION
  Report Type: Spontaneous
  Country: US (occurrence: US)
  Receive Date: 20250821
  Receipt Date: 20250821
  Transmission Date: 20251020
  Serious: No
  Sender: SANDOZ
  Company Number: US-002147023-NVSC2023US183266

PATIENT
  Age: 73 Year
  Sex: Female
  Weight: 58.5 kg

DRUGS (9)
  1. AZITHROMYCIN [Suspect]
     Active Substance: AZITHROMYCIN
     Indication: Mycobacterium abscessus infection
     Dosage: 250 MG, QD
     Route: 048
     Dates: start: 20221001, end: 20230818
  2. AZITHROMYCIN [Suspect]
     Active Substance: AZITHROMYCIN
     Indication: Mycobacterium avium complex infection
  3. IMIPENEM [Suspect]
     Active Substance: IMIPENEM
     Indication: Mycobacterium abscessus infection
     Dosage: 1 G, Q12H
     Route: 042
     Dates: start: 20221107, end: 20230818
  4. IMIPENEM [Suspect]
     Active Substance: IMIPENEM
     Indication: Mycobacterium avium complex infection
  5. LAMPRENE [Suspect]
     Active Substance: CLOFAZIMINE
     Indication: Mycobacterium abscessus infection
     Dosage: 100 MG, QD
     Route: 048
     Dates: start: 20221017, end: 20230818
  6. LAMPRENE [Suspect]
     Active Substance: CLOFAZIMINE
     Indication: Mycobacterium avium complex infection
  7. POSACONAZOLE [Suspect]
     Active Substance: POSACONAZOLE
     Indication: Bronchopulmonary aspergillosis
     Dosage: 300 MG, QD
     Route: 048
     Dates: start: 20230721, end: 20230815
  8. ETHAMBUTOL [Concomitant]
     Active Substance: ETHAMBUTOL HYDROCHLORIDE
     Indication: Mycobacterium abscessus infection
     Dosage: 800 MG, QD
     Route: 048
     Dates: start: 20221001, end: 20230818
  9. ETHAMBUTOL [Concomitant]
     Active Substance: ETHAMBUTOL HYDROCHLORIDE
     Indication: Mycobacterium avium complex infection

REACTIONS (1)
  - Drug intolerance [Recovering/Resolving]

NARRATIVE: CASE EVENT DATE: 20230727
